FAERS Safety Report 20421933 (Version 1)
Quarter: 2022Q1

REPORT INFORMATION
  Report Type: Spontaneous
  Country: CH (occurrence: CH)
  Receive Date: 20220203
  Receipt Date: 20220203
  Transmission Date: 20220423
  Serious: Yes (Hospitalization)
  Sender: FDA-Public Use
  Company Number: CH-SM-2019-10672

PATIENT
  Age: 68 Year
  Sex: Female
  Weight: 64.1 kg

DRUGS (4)
  1. IBUPROFEN [Suspect]
     Active Substance: IBUPROFEN
     Indication: Non-cardiac chest pain
     Dosage: AS NECESSARY
     Route: 048
     Dates: start: 20190120, end: 20190131
  2. VALACYCLOVIR HYDROCHLORIDE [Suspect]
     Active Substance: VALACYCLOVIR HYDROCHLORIDE
     Indication: Herpes zoster
     Route: 048
     Dates: start: 20190121, end: 20190127
  3. METAMIZOLE [Suspect]
     Active Substance: METAMIZOLE
     Indication: Non-cardiac chest pain
     Route: 048
     Dates: start: 20190120, end: 20190131
  4. TIZANIDINE [Suspect]
     Active Substance: TIZANIDINE
     Indication: Chest pain
     Dosage: AS NECESSARY
     Route: 048
     Dates: start: 20190120, end: 20190131

REACTIONS (1)
  - Agranulocytosis [Recovering/Resolving]

NARRATIVE: CASE EVENT DATE: 20190131
